FAERS Safety Report 8181265-X (Version None)
Quarter: 2012Q1

REPORT INFORMATION
  Report Type: 
  Country: None (occurrence: None)
  Receive Date: 20120126
  Receipt Date: 20111128
  Transmission Date: 20120608
  Serious: Yes (Hospitalization, Other)
  Sender: FDA-Public Use
  Company Number: PHHY2011US61147

PATIENT
  Age: 4 Year
  Sex: Female

DRUGS (6)
  1. AFINITOR [Suspect]
     Indication: TUBEROUS SCLEROSIS
     Dosage: 5 MG, DAILY, ORAL
     Route: 048
     Dates: start: 20110219
  2. DIASTAT [Concomitant]
  3. SABRIL [Concomitant]
  4. VERSED [Concomitant]
  5. BACTRIM [Concomitant]
  6. FELBAMATE [Concomitant]

REACTIONS (10)
  - DECREASED APPETITE [None]
  - MOUTH ULCERATION [None]
  - HYPOPHAGIA [None]
  - NASAL CONGESTION [None]
  - ORAL PAIN [None]
  - PYREXIA [None]
  - GRAND MAL CONVULSION [None]
  - APHAGIA [None]
  - RHINORRHOEA [None]
  - URINARY TRACT INFECTION [None]
